FAERS Safety Report 6332590-6 (Version None)
Quarter: 2009Q3

REPORT INFORMATION
  Report Type: 
  Country: None (occurrence: None)
  Receive Date: 20090827
  Receipt Date: 20090827
  Transmission Date: 20100115
  Serious: Yes (Other)
  Sender: FDA-Public Use
  Company Number: None

PATIENT
  Age: 72 Year
  Sex: Female
  Weight: 61.2356 kg

DRUGS (1)
  1. ALLI [Suspect]
     Indication: WEIGHT CONTROL
     Dates: start: 20090525, end: 20090608

REACTIONS (1)
  - HYPONATRAEMIA [None]
